FAERS Safety Report 6301305-X (Version None)
Quarter: 2009Q3

REPORT INFORMATION
  Report Type: 
  Country: None (occurrence: None)
  Receive Date: 20090807
  Receipt Date: 20090729
  Transmission Date: 20100115
  Serious: Yes (Other)
  Sender: FDA-Public Use
  Company Number: JP-ABBOTT-09P-087-0589301-00

PATIENT
  Sex: Male

DRUGS (3)
  1. KALETRA [Suspect]
     Indication: HIV INFECTION
     Route: 048
     Dates: start: 20061102
  2. ABACAVIR [Concomitant]
     Indication: HIV INFECTION
     Dates: start: 20061102
  3. LAMIVUDINE [Concomitant]
     Indication: HIV INFECTION
     Route: 048
     Dates: start: 20061102

REACTIONS (2)
  - LOSS OF CONSCIOUSNESS [None]
  - PENIS CARCINOMA [None]
